FAERS Safety Report 8435159-2 (Version None)
Quarter: 2012Q2

REPORT INFORMATION
  Report Type: 
  Country: None (occurrence: None)
  Receive Date: 20120614
  Receipt Date: 20120606
  Transmission Date: 20120825
  Serious: Yes (Hospitalization, Other)
  Sender: FDA-Public Use
  Company Number: US-BAYER-2012-057359

PATIENT
  Age: 29 Year
  Sex: Female
  Weight: 144.8 kg

DRUGS (14)
  1. ADDERALL 5 [Concomitant]
     Dosage: 20 MG, UNK
     Route: 048
  2. ZOFRAN [Concomitant]
     Indication: VOMITING
  3. WELLBUTRIN [Concomitant]
  4. ABILIFY [Concomitant]
     Dosage: 5 MG, UNK
     Route: 048
  5. LEVEMIR [Concomitant]
     Dosage: 50 U, EVERY EVENING
     Route: 058
  6. LEVOTHYROXINE SODIUM [Concomitant]
     Dosage: 200 ?G, UNK
     Route: 048
  7. YAZ [Suspect]
     Indication: CONTRACEPTION
  8. ORAL CONTRACEPTIVE NOS [Concomitant]
  9. SYNTHROID [Concomitant]
  10. LAMICTAL [Concomitant]
     Dosage: 200 MG, UNK
     Route: 048
  11. BUPROPION HYDROCHLORIDE [Concomitant]
     Dosage: 150 MG, UNK
     Route: 048
  12. LEVEMIR [Concomitant]
     Dosage: 30 U, OM
     Route: 058
  13. BUPROPION HYDROCHLORIDE [Concomitant]
     Dosage: 75 MG, UNK
     Route: 048
  14. NOVOLOG [Concomitant]
     Dosage: 1 UNIT FOR EACH 15 GM OF CARBOHYDRATES
     Route: 058

REACTIONS (2)
  - CHOLECYSTITIS [None]
  - PULMONARY EMBOLISM [None]
